FAERS Safety Report 10555332 (Version 2)
Quarter: 2015Q3

REPORT INFORMATION
  Report Type: Spontaneous
  Country: US (occurrence: US)
  Receive Date: 20141030
  Receipt Date: 20150818
  Transmission Date: 20151125
  Serious: No
  Sender: FDA-Public Use
  Company Number: US-GILEAD-2014-0120542

PATIENT
  Age: 78 Year
  Sex: Female

DRUGS (12)
  1. LETAIRIS [Suspect]
     Active Substance: AMBRISENTAN
     Indication: PULMONARY ARTERIAL HYPERTENSION
     Dosage: 5 MG, QD
     Route: 065
     Dates: end: 20141015
  2. OPSUMIT [Concomitant]
     Active Substance: MACITENTAN
  3. LASIX [Concomitant]
     Active Substance: FUROSEMIDE
  4. REVATIO [Concomitant]
     Active Substance: SILDENAFIL CITRATE
  5. LEVOXYL [Concomitant]
     Active Substance: LEVOTHYROXINE SODIUM
  6. PANTOPRAZOLE [Concomitant]
     Active Substance: PANTOPRAZOLE SODIUM
  7. SIMVASTATIN. [Concomitant]
     Active Substance: SIMVASTATIN
  8. CLONIDINE. [Concomitant]
     Active Substance: CLONIDINE
  9. FLECAINIDE [Concomitant]
     Active Substance: FLECAINIDE
  10. WARFARIN [Concomitant]
     Active Substance: WARFARIN
  11. METOPROLOL [Concomitant]
     Active Substance: METOPROLOL
  12. POTASSIUM [Concomitant]
     Active Substance: POTASSIUM

REACTIONS (1)
  - Drug ineffective [Recovered/Resolved]
